FAERS Safety Report 4936273-6 (Version None)
Quarter: 2006Q1

REPORT INFORMATION
  Report Type: 
  Country: None (occurrence: None)
  Receive Date: 20060302
  Receipt Date: 20060217
  Transmission Date: 20060701
  Serious: No
  Sender: FDA-Public Use
  Company Number: 2006US-01664

PATIENT
  Age: 73 Year
  Sex: Female

DRUGS (1)
  1. ACETAMINOPHEN [Suspect]

REACTIONS (6)
  - ALANINE AMINOTRANSFERASE INCREASED [None]
  - CARDIOTOXICITY [None]
  - COMA [None]
  - INTERNATIONAL NORMALISED RATIO INCREASED [None]
  - OVERDOSE [None]
  - PNEUMONIA ASPIRATION [None]
